FAERS Safety Report 5720278-1 (Version None)
Quarter: 2008Q2

REPORT INFORMATION
  Report Type: 
  Country: None (occurrence: None)
  Receive Date: 20080428
  Receipt Date: 20080417
  Transmission Date: 20081010
  Serious: Yes (Life-Threatening, Hospitalization)
  Sender: FDA-Public Use
  Company Number: NO-ROCHE-559621

PATIENT
  Age: 76 Year
  Sex: Female

DRUGS (2)
  1. XELODA [Suspect]
     Indication: SMALL INTESTINE CARCINOMA
     Dosage: FORM: FILM COATED TABLETS, DOSE REGIMEN: 2 WEEK ON 1 WEEK OFF.
     Route: 048
     Dates: start: 20071220
  2. UNSPECIFIED DRUGS [Concomitant]
     Dosage: DRUG REPORTED AS: SEVERAL CONCOMITANT DRUGS NOS (NO CHEMOTHERAPY).

REACTIONS (1)
  - GRAND MAL CONVULSION [None]
